FAERS Safety Report 8583374-X (Version None)
Quarter: 2012Q3

REPORT INFORMATION
  Report Type: 
  Country: None (occurrence: None)
  Receive Date: 20120809
  Receipt Date: 20120731
  Transmission Date: 20120928
  Serious: Yes (Hospitalization)
  Sender: FDA-Public Use
  Company Number: US-ROCHE-1095161

PATIENT
  Sex: Female
  Weight: 73.548 kg

DRUGS (1)
  1. RANIBIZUMAB [Suspect]
     Indication: AGE-RELATED MACULAR DEGENERATION
     Route: 050

REACTIONS (8)
  - FALL [None]
  - INTRAOCULAR PRESSURE INCREASED [None]
  - ANTERIOR CHAMBER COLLAPSE [None]
  - RETINAL DETACHMENT [None]
  - CATARACT [None]
  - LOSS OF CONSCIOUSNESS [None]
  - MEMORY IMPAIRMENT [None]
  - VERTIGO [None]
